FAERS Safety Report 9391805 (Version 2)
Quarter: 2013Q4

REPORT INFORMATION
  Report Type: Report from Study
  Country: RS (occurrence: RS)
  Receive Date: 20130709
  Receipt Date: 20131018
  Transmission Date: 20140711
  Serious: Yes (Death, Hospitalization, Other)
  Sender: FDA-Public Use
  Company Number: RS-ACTELION-A-CH2013-85368

PATIENT
  Age: 13 Year
  Sex: Female

DRUGS (5)
  1. TRACLEER [Suspect]
     Indication: PULMONARY ARTERIAL HYPERTENSION
     Dosage: 125 MG, BID
     Route: 048
     Dates: start: 2003
  2. SILDENAFIL [Concomitant]
     Dosage: 50 MG, Q6HRS
     Dates: start: 2001
  3. AMLODIPINE [Concomitant]
     Dosage: 1 MG, UNK
     Dates: start: 2001
  4. SPIRONOLACTON [Concomitant]
     Dosage: 12.5 MG, UNK
     Dates: start: 2001
  5. FUROSEMIDE [Concomitant]
     Dosage: 20 MG, QD
     Dates: start: 2001

REACTIONS (5)
  - Post procedural complication [Fatal]
  - Cardiac failure [Fatal]
  - Cardiovascular insufficiency [Fatal]
  - Condition aggravated [Unknown]
  - Systemic-pulmonary artery shunt [Unknown]
